FAERS Safety Report 18447669 (Version 1)
Quarter: 2020Q4

REPORT INFORMATION
  Report Type: Spontaneous
  Country: FR (occurrence: FR)
  Receive Date: 20201101
  Receipt Date: 20201101
  Transmission Date: 20210114
  Serious: Yes (Other)
  Sender: FDA-Public Use
  Company Number: FR-ROCHE-2703856

PATIENT
  Age: 53 Year
  Sex: Female

DRUGS (2)
  1. ALECENSA [Suspect]
     Active Substance: ALECTINIB HYDROCHLORIDE
     Indication: ADENOCARCINOMA
     Dosage: PATIENTS WAS ADMINISTERED 900 MG PER DAY INSTEAD OF 600 MG AS A BLOOD DOSAGE?SHOWED A SUB-EXPOSITION
     Route: 065
  2. ALECENSA [Suspect]
     Active Substance: ALECTINIB HYDROCHLORIDE
     Indication: MALIGNANT MELANOMA
     Route: 065

REACTIONS (1)
  - Malignant melanoma [Not Recovered/Not Resolved]
